FAERS Safety Report 10414063 (Version 1)
Quarter: 2014Q3

REPORT INFORMATION
  Report Type: Spontaneous
  Country: GB (occurrence: None)
  Receive Date: 20140826
  Receipt Date: 20140826
  Transmission Date: 20150326
  Serious: Yes (Other)
  Sender: FDA-Public Use
  Company Number: 2014RN000044

PATIENT
  Sex: Male

DRUGS (1)
  1. ACYCLOVIR (ACYCLOVIR) TABLET [Suspect]
     Active Substance: ACYCLOVIR
     Indication: PRODUCT USED FOR UNKNOWN INDICATION

REACTIONS (8)
  - Somnolence [None]
  - Musculoskeletal stiffness [None]
  - Fatigue [None]
  - Confusional state [None]
  - Dizziness [None]
  - Agitation [None]
  - Thinking abnormal [None]
  - Headache [None]
